FAERS Safety Report 10310777 (Version 1)
Quarter: 2014Q3

REPORT INFORMATION
  Report Type: Spontaneous
  Country: FR (occurrence: None)
  Receive Date: 20140715
  Receipt Date: 20140715
  Transmission Date: 20150326
  Serious: Yes (Other)
  Sender: FDA-Public Use
  Company Number: ADR-2014-01218

PATIENT
  Age: 50 Year
  Sex: Male

DRUGS (2)
  1. BACLOFEN. [Suspect]
     Active Substance: BACLOFEN
     Dosage: MEAN DOSE
  2. ALCOHOL (ETHANOL) [Suspect]
     Active Substance: ALCOHOL
     Dosage: 16 CASES (UNSPECIFIED) HAD CO-MEDICATION WITH PSYCHOTROPIC DRUGS (UNSPECIFIED).

REACTIONS (2)
  - Alcohol poisoning [None]
  - Poisoning deliberate [None]

NARRATIVE: CASE EVENT DATE: 20140101
